FAERS Safety Report 7207901-X (Version None)
Quarter: 2011Q1

REPORT INFORMATION
  Report Type: 
  Country: None (occurrence: None)
  Receive Date: 20110104
  Receipt Date: 20101221
  Transmission Date: 20110831
  Serious: Yes (Other)
  Sender: FDA-Public Use
  Company Number: GB-JNJFOC-20090701692

PATIENT

DRUGS (5)
  1. PARACETAMOL [Suspect]
     Indication: ILL-DEFINED DISORDER
     Route: 065
  2. AMPHETAMINES [Suspect]
     Indication: ILL-DEFINED DISORDER
     Route: 065
  3. PARACETAMOL [Suspect]
     Route: 065
  4. BARBITURATES [Suspect]
     Indication: ILL-DEFINED DISORDER
     Route: 065
  5. PARAMOL [Suspect]
     Indication: ILL-DEFINED DISORDER
     Route: 065

REACTIONS (1)
  - WITHDRAWAL SYNDROME [None]
